FAERS Safety Report 4448018-7 (Version None)
Quarter: 2004Q3

REPORT INFORMATION
  Report Type: 
  Country: None (occurrence: None)
  Receive Date: 20040813
  Receipt Date: 20040605
  Transmission Date: 20050211
  Serious: No
  Sender: FDA-Public Use
  Company Number: S04-USA-03768-01

PATIENT
  Age: 74 Year
  Sex: Female

DRUGS (4)
  1. NAMENDA [Suspect]
     Indication: DEMENTIA ALZHEIMER'S TYPE
     Dosage: 15 MG QD PO
     Route: 048
     Dates: start: 20040603, end: 20040605
  2. ARICEPT [Concomitant]
  3. CARBIDOPA AND LEVODOPA [Concomitant]
  4. FOSAMAX [Concomitant]

REACTIONS (3)
  - CONFUSIONAL STATE [None]
  - DELIRIUM [None]
  - PARANOIA [None]
